FAERS Safety Report 15195018 (Version 1)
Quarter: 2018Q3

REPORT INFORMATION
  Report Type: Spontaneous
  Country: US (occurrence: US)
  Receive Date: 20180725
  Receipt Date: 20180725
  Transmission Date: 20181010
  Serious: Yes (Other)
  Sender: FDA-Public Use
  Company Number: US-SA-2017SA267765

PATIENT
  Age: 74 Year
  Sex: Female
  Weight: 83 kg

DRUGS (9)
  1. HYDROCHLOROTHIAZIDE. [Concomitant]
     Active Substance: HYDROCHLOROTHIAZIDE
     Route: 065
     Dates: start: 20010610
  2. LEVOTHYROXINE. [Concomitant]
     Active Substance: LEVOTHYROXINE
     Route: 065
     Dates: start: 19770815
  3. TAXOTERE [Suspect]
     Active Substance: DOCETAXEL
     Indication: BREAST CANCER FEMALE
     Dosage: 195 MG,Q3W
     Route: 042
     Dates: start: 20090209, end: 20090209
  4. NEOSAR [Concomitant]
     Active Substance: CYCLOPHOSPHAMIDE
     Route: 065
  5. CYTOXAN [Concomitant]
     Active Substance: CYCLOPHOSPHAMIDE
     Route: 065
  6. EPIRUBICIN [Concomitant]
     Active Substance: EPIRUBICIN
     Route: 065
  7. TAXOTERE [Suspect]
     Active Substance: DOCETAXEL
     Dosage: 195 MG,Q3W
     Route: 042
     Dates: start: 20090309, end: 20090309
  8. ELLENCE [Concomitant]
     Active Substance: EPIRUBICIN HYDROCHLORIDE
  9. PRAVASTATIN. [Concomitant]
     Active Substance: PRAVASTATIN
     Dosage: UNK UNK, UNK
     Route: 065
     Dates: start: 20010610

REACTIONS (2)
  - Alopecia [Recovering/Resolving]
  - Psychological trauma [Unknown]

NARRATIVE: CASE EVENT DATE: 20171107
